FAERS Safety Report 8276817-2 (Version None)
Quarter: 2012Q2

REPORT INFORMATION
  Report Type: 
  Country: None (occurrence: None)
  Receive Date: 20120412
  Receipt Date: 20120402
  Transmission Date: 20120825
  Serious: Yes (Disabling)
  Sender: FDA-Public Use
  Company Number: CA-NOVOPROD-348669

PATIENT
  Age: 45 Year
  Sex: Female
  Weight: 127 kg

DRUGS (9)
  1. D-TABS [Concomitant]
  2. EURO-FERROUS SULFATE [Concomitant]
  3. CALCIUM CARBONATE [Concomitant]
  4. VICTOZA [Suspect]
     Indication: PRODUCT USED FOR UNKNOWN INDICATION
     Dosage: 0.6 MG, QD
     Route: 058
  5. ASAPHEN [Concomitant]
  6. PRO-METFORMIN [Concomitant]
  7. TEVETENS PLUS [Concomitant]
  8. ADALAT [Concomitant]
  9. CYCLOBENAZPRINE [Concomitant]

REACTIONS (3)
  - HEART RATE INCREASED [None]
  - OROPHARYNGEAL PAIN [None]
  - HEADACHE [None]
